FAERS Safety Report 15147873 (Version 4)
Quarter: 2018Q3

REPORT INFORMATION
  Report Type: Spontaneous
  Country: UY (occurrence: UY)
  Receive Date: 20180716
  Receipt Date: 20180820
  Transmission Date: 20181010
  Serious: Yes (Other)
  Sender: FDA-Public Use
  Company Number: UY-UCBSA-2018030906

PATIENT
  Age: 14 Year
  Sex: Male

DRUGS (3)
  1. KEPPRA [Suspect]
     Active Substance: LEVETIRACETAM
     Indication: EPILEPSY
     Dosage: 750 MG IN MORNING, 500 MG AT NOON AND 750 MG AT NIGHT, 3X/DAY (TID)
  2. LAMICTAL [Suspect]
     Active Substance: LAMOTRIGINE
     Indication: PRODUCT USED FOR UNKNOWN INDICATION
     Dosage: UNK
  3. KEPPRA [Suspect]
     Active Substance: LEVETIRACETAM
     Dosage: 750 MG IN MORNING, 500 MG AT NOON AND 750 MG AT NIGHT, 3X/DAY (TID)

REACTIONS (7)
  - Eructation [Unknown]
  - Abdominal discomfort [Recovering/Resolving]
  - Drug ineffective [Unknown]
  - Product quality issue [Unknown]
  - Partial seizures [Unknown]
  - Off label use [Unknown]
  - Hypersensitivity [Unknown]
